FAERS Safety Report 8694973 (Version 4)
Quarter: 2013Q1

REPORT INFORMATION
  Report Type: Spontaneous
  Country: US (occurrence: US)
  Receive Date: 20120731
  Receipt Date: 20130213
  Transmission Date: 20140127
  Serious: Yes (Hospitalization, Disabling, Other)
  Sender: FDA-Public Use
  Company Number: US-009507513-1207USA007385

PATIENT
  Sex: Female
  Weight: 59.41 kg

DRUGS (5)
  1. FOSAMAX [Suspect]
     Dosage: 70 MG, QW
     Route: 048
     Dates: start: 19991119, end: 201107
  2. FOSAMAX [Suspect]
     Dosage: 70 MG, QW
     Route: 048
     Dates: start: 20081030
  3. ALENDRONATE SODIUM [Suspect]
     Dosage: UNK
     Dates: start: 200810
  4. ALENDRONATE SODIUM [Suspect]
     Dosage: UNK
     Dates: start: 200911, end: 201009
  5. ESTROGENS (UNSPECIFIED) [Concomitant]
     Dosage: UNK
     Dates: start: 2002, end: 2011

REACTIONS (30)
  - Femur fracture [Recovered/Resolved]
  - Open reduction of fracture [Unknown]
  - Fall [Unknown]
  - Anaemia postoperative [Recovering/Resolving]
  - Transfusion [Unknown]
  - Femur fracture [Unknown]
  - Hypokalaemia [Recovered/Resolved]
  - Constipation [Recovering/Resolving]
  - Rhinitis allergic [Unknown]
  - Cataract [Unknown]
  - Osteopenia [Unknown]
  - Hyperlipidaemia [Not Recovered/Not Resolved]
  - Lichen sclerosus [Recovering/Resolving]
  - Thoracic vertebral fracture [Unknown]
  - Rib fracture [Recovered/Resolved]
  - Arthropathy [Recovered/Resolved]
  - Fractured sacrum [Unknown]
  - Fall [Unknown]
  - Pubis fracture [Recovering/Resolving]
  - Osteoarthritis [Unknown]
  - Cataract operation [Unknown]
  - Spinal compression fracture [Unknown]
  - Osteoporosis [Not Recovered/Not Resolved]
  - Iliotibial band syndrome [Unknown]
  - Fall [Unknown]
  - Cholelithiasis [Unknown]
  - Hiatus hernia [Unknown]
  - Adverse event [Unknown]
  - Diverticulitis [Unknown]
  - Intestinal dilatation [Unknown]
